FAERS Safety Report 4745375-9 (Version None)
Quarter: 2005Q3

REPORT INFORMATION
  Report Type: 
  Country: None (occurrence: None)
  Receive Date: 20050815
  Receipt Date: 20050804
  Transmission Date: 20060218
  Serious: Yes (Death, Other)
  Sender: FDA-Public Use
  Company Number: 05-06-1079

PATIENT
  Age: 70 Year
  Sex: Female

DRUGS (7)
  1. CLOZAPINE [Suspect]
     Indication: SCHIZOPHRENIA
     Dosage: 175 MG QD ORAL
     Route: 048
     Dates: start: 19990701, end: 20050501
  2. VENLAFAXINE [Suspect]
     Indication: MAJOR DEPRESSION
     Dosage: 225 MG QD ORAL
     Route: 048
  3. FUROSEMIDE [Concomitant]
  4. GLYBURIDE [Concomitant]
  5. TOPROL-XL [Concomitant]
  6. RANITIDINE HCL [Concomitant]
  7. ALBUTEROL [Concomitant]

REACTIONS (2)
  - MYOCARDIAL INFARCTION [None]
  - PULMONARY EMBOLISM [None]
